FAERS Safety Report 19157727 (Version 1)
Quarter: 2021Q2

REPORT INFORMATION
  Report Type: Spontaneous
  Country: US (occurrence: US)
  Receive Date: 20210420
  Receipt Date: 20210420
  Transmission Date: 20210717
  Serious: Yes (Other)
  Sender: FDA-Public Use
  Company Number: US-ALLERGAN-2015274US

PATIENT
  Sex: Female

DRUGS (4)
  1. ACTONEL [Suspect]
     Active Substance: RISEDRONATE SODIUM
     Indication: BACK INJURY
     Dosage: 1 DF, QAM
     Route: 048
     Dates: start: 2004, end: 2005
  2. POTASSIUM [Concomitant]
     Active Substance: POTASSIUM
  3. AMLODIPINE [Concomitant]
     Active Substance: AMLODIPINE BESYLATE
     Indication: BLOOD PRESSURE ABNORMAL
  4. LISINOPRIL. [Concomitant]
     Active Substance: LISINOPRIL
     Indication: BLOOD PRESSURE ABNORMAL

REACTIONS (6)
  - Osteonecrosis of jaw [Not Recovered/Not Resolved]
  - Oral infection [Recovered/Resolved]
  - Tooth extraction [Unknown]
  - Patient dissatisfaction with treatment [Unknown]
  - Toothache [Not Recovered/Not Resolved]
  - Inability to afford medication [Unknown]

NARRATIVE: CASE EVENT DATE: 2004
